FAERS Safety Report 10195608 (Version 1)
Quarter: 2014Q2

REPORT INFORMATION
  Report Type: Spontaneous
  Country: CA (occurrence: CA)
  Receive Date: 20140527
  Receipt Date: 20140527
  Transmission Date: 20141212
  Serious: Yes (Other)
  Sender: FDA-Public Use
  Company Number: CA-AMGEN-CANSP2014038330

PATIENT
  Age: 83 Year
  Sex: Female

DRUGS (6)
  1. ENBREL [Suspect]
     Indication: RHEUMATOID ARTHRITIS
     Dosage: 50 MG, QWK
     Route: 065
     Dates: start: 20120601
  2. PREDNISONE [Concomitant]
     Dosage: UNK
  3. MTX                                /00113801/ [Concomitant]
     Dosage: 2 TABLETS ONCE WEEK
  4. ELTROXIN [Concomitant]
     Dosage: UNK
  5. RABEPRAZOLE [Concomitant]
     Dosage: UNK
  6. FOLIC ACID [Concomitant]
     Dosage: UNK, EVERYDAY EXCEPT ON ENBREL INJECTION DAY

REACTIONS (4)
  - Deafness transitory [Recovered/Resolved]
  - Lower respiratory tract infection [Recovered/Resolved]
  - Urinary tract infection [Recovered/Resolved]
  - Oropharyngeal pain [Recovered/Resolved]
